FAERS Safety Report 8294722-2 (Version None)
Quarter: 2012Q2

REPORT INFORMATION
  Report Type: 
  Country: None (occurrence: None)
  Receive Date: 20120418
  Receipt Date: 20120329
  Transmission Date: 20120825
  Serious: Yes (Other)
  Sender: FDA-Public Use
  Company Number: IL-ELI_LILLY_AND_COMPANY-IL201204005344

PATIENT
  Sex: Female
  Weight: 65 kg

DRUGS (2)
  1. CADEX [Concomitant]
     Indication: HYPERTENSION
  2. FORTEO [Suspect]
     Indication: OSTEOPOROSIS
     Dosage: 20 UG, UNK
     Route: 058
     Dates: start: 20111113, end: 20120316

REACTIONS (1)
  - LOSS OF CONSCIOUSNESS [None]
